FAERS Safety Report 12327225 (Version 1)
Quarter: 2016Q2

REPORT INFORMATION
  Report Type: Spontaneous
  Country: US (occurrence: None)
  Receive Date: 20160502
  Receipt Date: 20160502
  Transmission Date: 20160815
  Serious: Yes (Other)
  Sender: FDA-Public Use
  Company Number: None

PATIENT
  Age: 53 Year
  Sex: Female
  Weight: 60.96 kg

DRUGS (1)
  1. INFLIXIMAB [Suspect]
     Active Substance: INFLIXIMAB
     Indication: RHEUMATOID ARTHRITIS
     Dosage: 500 MG EVERY 5 WEEKS INTRAVENOUS DRIP
     Route: 041
     Dates: start: 20050722, end: 20151231

REACTIONS (2)
  - Urinary tract infection [None]
  - Psoriasis [None]

NARRATIVE: CASE EVENT DATE: 20160428
